FAERS Safety Report 6839611-2 (Version None)
Quarter: 2010Q3

REPORT INFORMATION
  Report Type: 
  Country: None (occurrence: None)
  Receive Date: 20100714
  Receipt Date: 20100701
  Transmission Date: 20110219
  Serious: Yes (Other)
  Sender: FDA-Public Use
  Company Number: TR-ELI_LILLY_AND_COMPANY-TR201007000194

PATIENT
  Age: 38 Year
  Sex: Female

DRUGS (3)
  1. HUMULIN N [Suspect]
     Indication: GESTATIONAL DIABETES
     Dosage: 24 U, 2/D
     Route: 058
  2. HUMULIN N [Suspect]
     Dosage: 14 IU, EACH EVENING
     Route: 058
  3. NOVORAPID [Concomitant]
     Dosage: 6 IU, 3/D (MORNING, NOON, EVENING)
     Route: 058

REACTIONS (2)
  - ABORTION SPONTANEOUS [None]
  - DRUG EXPOSURE DURING PREGNANCY [None]
